FAERS Safety Report 8358495-7 (Version None)
Quarter: 2012Q2

REPORT INFORMATION
  Report Type: 
  Country: None (occurrence: None)
  Receive Date: 20120514
  Receipt Date: 20120510
  Transmission Date: 20120825
  Serious: Yes (Other)
  Sender: FDA-Public Use
  Company Number: US-PFIZER INC-2012115274

PATIENT
  Sex: Female
  Weight: 63.492 kg

DRUGS (4)
  1. LYRICA [Suspect]
     Indication: PAIN IN EXTREMITY
  2. LYRICA [Suspect]
     Indication: OEDEMA PERIPHERAL
     Dosage: 200 MG, 2X/DAY
  3. HYDROCHLOROTHIAZIDE [Concomitant]
     Indication: DIURETIC THERAPY
     Dosage: 25 MG, DAILY
  4. JANUVIA [Concomitant]
     Indication: DIABETES MELLITUS
     Dosage: 100 MG, DAILY

REACTIONS (1)
  - EAR INFECTION [None]
